FAERS Safety Report 10292238 (Version 4)
Quarter: 2014Q3

REPORT INFORMATION
  Report Type: Report from Study
  Country: DE (occurrence: DE)
  Receive Date: 20140710
  Receipt Date: 20140728
  Transmission Date: 20150326
  Serious: Yes (Death, Hospitalization, Other)
  Sender: FDA-Public Use
  Company Number: PHHY2014DE054061

PATIENT
  Sex: Female
  Weight: 67 kg

DRUGS (3)
  1. BISPHOSPHONATES [Concomitant]
     Active Substance: UNSPECIFIED INGREDIENT
     Indication: PROPHYLAXIS
  2. AFINITOR [Suspect]
     Active Substance: EVEROLIMUS
     Indication: BREAST CANCER METASTATIC
     Dosage: 10 MG, QD
     Route: 048
     Dates: start: 20131017
  3. EXEMESTANE. [Suspect]
     Active Substance: EXEMESTANE
     Indication: BREAST CANCER METASTATIC
     Dosage: 25 MG, QD
     Route: 048
     Dates: start: 20131017

REACTIONS (17)
  - Ascites [Fatal]
  - Malignant pleural effusion [Fatal]
  - Dyspnoea [Fatal]
  - Bile duct stenosis [Recovered/Resolved]
  - Vomiting [Fatal]
  - Pulmonary oedema [Fatal]
  - Weight increased [Fatal]
  - Chest discomfort [Fatal]
  - Anaemia [Recovered/Resolved]
  - Decreased appetite [Fatal]
  - Nausea [Fatal]
  - Pain [Recovered/Resolved]
  - General physical health deterioration [Fatal]
  - Fatigue [Fatal]
  - Cardiac arrest [Fatal]
  - Oedema peripheral [Fatal]
  - Jaundice [Recovered/Resolved]

NARRATIVE: CASE EVENT DATE: 20140412
